FAERS Safety Report 12795743 (Version 2)
Quarter: 2016Q3

REPORT INFORMATION
  Report Type: Spontaneous
  Country: US (occurrence: US)
  Receive Date: 20160929
  Receipt Date: 20160930
  Transmission Date: 20161109
  Serious: Yes (Hospitalization, Disabling)
  Sender: FDA-Public Use
  Company Number: US-ENDO PHARMACEUTICALS INC.-2016-004432

PATIENT
  Age: 71 Year
  Sex: Male
  Weight: 70.37 kg

DRUGS (3)
  1. AXIRON [Suspect]
     Active Substance: TESTOSTERONE
     Indication: ANDROGEN REPLACEMENT THERAPY
     Route: 065
     Dates: start: 20130318, end: 20130319
  2. FORTESTA [Suspect]
     Active Substance: TESTOSTERONE
     Indication: ANDROGEN REPLACEMENT THERAPY
     Route: 061
     Dates: start: 201303, end: 201509
  3. ANDROGEL [Suspect]
     Active Substance: TESTOSTERONE
     Indication: ANDROGEN REPLACEMENT THERAPY
     Route: 062
     Dates: start: 201202, end: 201303

REACTIONS (16)
  - Aortic valve incompetence [Unknown]
  - Ischaemic cardiomyopathy [Unknown]
  - Pulmonary embolism [Not Recovered/Not Resolved]
  - Incorrect dose administered [Unknown]
  - Cardiac valve disease [Unknown]
  - Myocardial infarction [Not Recovered/Not Resolved]
  - Urinary tract infection [Unknown]
  - Coronary artery disease [Unknown]
  - Acute myocardial infarction [Not Recovered/Not Resolved]
  - Hypotension [Unknown]
  - Encephalopathy [Unknown]
  - Cardiac failure congestive [Unknown]
  - Deep vein thrombosis [Not Recovered/Not Resolved]
  - Haematuria [Unknown]
  - Underdose [Unknown]
  - Atrial fibrillation [Recovered/Resolved]

NARRATIVE: CASE EVENT DATE: 20120605
